FAERS Safety Report 22392087 (Version 5)
Quarter: 2023Q2

REPORT INFORMATION
  Report Type: Report from Study
  Country: ES (occurrence: ES)
  Receive Date: 20230601
  Receipt Date: 20230611
  Transmission Date: 20230721
  Serious: Yes (Hospitalization)
  Sender: FDA-Public Use
  Company Number: ES-ABBVIE-5183466

PATIENT
  Sex: Female
  Weight: 82 kg

DRUGS (2)
  1. CARBIDOPA\LEVODOPA [Suspect]
     Active Substance: CARBIDOPA\LEVODOPA
     Indication: Parkinson^s disease
     Route: 050
     Dates: start: 20190523, end: 2023
  2. CARBIDOPA\LEVODOPA [Suspect]
     Active Substance: CARBIDOPA\LEVODOPA
     Dosage: MORNING AND CONTINUOUS DOSE ADJUSTED
     Route: 050
     Dates: start: 2023

REACTIONS (12)
  - Gastrointestinal inflammation [Recovering/Resolving]
  - Ileus paralytic [Recovering/Resolving]
  - Stoma site discharge [Unknown]
  - Stoma site discharge [Recovering/Resolving]
  - Hypophagia [Unknown]
  - Diarrhoea [Recovering/Resolving]
  - Gastric infection [Unknown]
  - Device placement issue [Recovered/Resolved]
  - Inflammation [Recovering/Resolving]
  - Device dislocation [Recovered/Resolved]
  - Renal failure [Unknown]
  - Dyskinesia [Recovering/Resolving]

NARRATIVE: CASE EVENT DATE: 20230101
